FAERS Safety Report 7769669-8 (Version None)
Quarter: 2011Q3

REPORT INFORMATION
  Report Type: 
  Country: None (occurrence: None)
  Receive Date: 20110922
  Receipt Date: 20110919
  Transmission Date: 20111222
  Serious: Yes (Other)
  Sender: FDA-Public Use
  Company Number: AU-ROCHE-803308

PATIENT
  Age: 47 Year
  Sex: Female

DRUGS (5)
  1. PROPRANOLOL [Suspect]
     Route: 065
  2. DIAZEPAM [Suspect]
     Route: 065
  3. ZIPRASIDONE HYDROCHLORIDE [Suspect]
     Dosage: OVERDOSE
     Route: 065
  4. ZIPRASIDONE HYDROCHLORIDE [Suspect]
     Route: 065
  5. DIAZEPAM [Suspect]
     Dosage: OVERDOSE
     Route: 065

REACTIONS (3)
  - ELECTROCARDIOGRAM QT PROLONGED [None]
  - OVERDOSE [None]
  - SINUS BRADYCARDIA [None]
